FAERS Safety Report 9687896 (Version 1)
Quarter: 2013Q4

REPORT INFORMATION
  Report Type: Other
  Country: GB (occurrence: GB)
  Receive Date: 20131114
  Receipt Date: 20131114
  Transmission Date: 20140711
  Serious: Yes (Hospitalization)
  Sender: FDA-Public Use
  Company Number: GB-PERRIGO-13GB011435

PATIENT
  Age: 53 Year
  Sex: Female

DRUGS (6)
  1. IBUPROFEN 16028/0027 200 MG [Suspect]
     Indication: PAIN
     Dosage: UNK
     Route: 048
     Dates: start: 20121009, end: 20131010
  2. IBUPROFEN 16028/0027 200 MG [Suspect]
     Indication: INTERVERTEBRAL DISC PROTRUSION
  3. NAPROXEN 250MG 16028/0144 [Suspect]
     Indication: PAIN
     Dosage: 500 MG, BID
     Route: 048
     Dates: start: 20131010, end: 20131024
  4. NAPROXEN 250MG 16028/0144 [Suspect]
     Indication: INTERVERTEBRAL DISC PROTRUSION
  5. CODEINE [Concomitant]
     Indication: PRODUCT USED FOR UNKNOWN INDICATION
     Dosage: UNK
     Route: 065
  6. PARACETAMOL [Concomitant]
     Indication: PRODUCT USED FOR UNKNOWN INDICATION
     Dosage: UNK
     Route: 065

REACTIONS (3)
  - Duodenal ulcer [Recovering/Resolving]
  - Nausea [Unknown]
  - Vomiting [Unknown]
